FAERS Safety Report 17723816 (Version 2)
Quarter: 2020Q2

REPORT INFORMATION
  Report Type: Report from Study
  Country: MY (occurrence: MY)
  Receive Date: 20200429
  Receipt Date: 20200508
  Transmission Date: 20200714
  Serious: Yes (Death)
  Sender: FDA-Public Use
  Company Number: NVSC2020MY115183

PATIENT
  Sex: Male

DRUGS (1)
  1. BYL719 [Suspect]
     Active Substance: ALPELISIB
     Indication: GENE MUTATION
     Dosage: 300 MG, QD
     Route: 048
     Dates: start: 20200302

REACTIONS (1)
  - Neurofibrosarcoma [Fatal]
